FAERS Safety Report 6083859-4 (Version None)
Quarter: 2009Q1

REPORT INFORMATION
  Report Type: 
  Country: None (occurrence: None)
  Receive Date: 20090217
  Receipt Date: 20090217
  Transmission Date: 20090719
  Serious: Yes (Hospitalization)
  Sender: FDA-Public Use
  Company Number: None

PATIENT
  Sex: Male
  Weight: 113.3993 kg

DRUGS (6)
  1. CETUXIMAB PDA IND (12,158) [Suspect]
     Dosage: 400 MG/M2
     Dates: end: 20090212
  2. BENADRYL [Concomitant]
  3. VICODIN [Concomitant]
  4. ROXICODONE [Concomitant]
  5. VALIUM [Concomitant]
  6. DEILAUDID [Concomitant]

REACTIONS (1)
  - MENINGITIS ASEPTIC [None]
